FAERS Safety Report 6252957-4 (Version None)
Quarter: 2009Q3

REPORT INFORMATION
  Report Type: 
  Country: None (occurrence: None)
  Receive Date: 20090701
  Receipt Date: 20090624
  Transmission Date: 20100115
  Serious: Yes (Hospitalization)
  Sender: FDA-Public Use
  Company Number: B0575256A

PATIENT
  Sex: Female
  Weight: 59 kg

DRUGS (10)
  1. ZANTAC [Suspect]
     Indication: PREMEDICATION
     Dosage: 50MG PER DAY
     Route: 042
     Dates: start: 20090518, end: 20090518
  2. DEXAMETHASONE [Suspect]
     Indication: PREMEDICATION
     Dosage: 20MG PER DAY
     Route: 065
     Dates: start: 20090518, end: 20090518
  3. GRANISETRON HCL [Suspect]
     Indication: PREMEDICATION
     Dosage: 3MG PER DAY
     Route: 065
     Dates: start: 20090518, end: 20090518
  4. DIPHENHYDRAMINE HCL [Concomitant]
     Route: 048
  5. NOVORAPID [Concomitant]
     Dosage: 16IU PER DAY
     Route: 058
  6. MICARDIS [Concomitant]
     Route: 048
  7. TENORMIN [Concomitant]
     Route: 048
  8. CRESTOR [Concomitant]
     Route: 048
  9. TAXOL [Concomitant]
     Route: 065
  10. CARBOPLATIN [Concomitant]
     Route: 065

REACTIONS (8)
  - ANAPHYLACTIC SHOCK [None]
  - BLOOD PRESSURE ABNORMAL [None]
  - DEPRESSED LEVEL OF CONSCIOUSNESS [None]
  - HYPOAESTHESIA [None]
  - MYDRIASIS [None]
  - RESPIRATION ABNORMAL [None]
  - RESPIRATORY FAILURE [None]
  - URINARY INCONTINENCE [None]
